FAERS Safety Report 8832661 (Version 2)
Quarter: 2013Q1

REPORT INFORMATION
  Report Type: Spontaneous
  Country: US (occurrence: US)
  Receive Date: 20121010
  Receipt Date: 20130125
  Transmission Date: 20140127
  Serious: No
  Sender: FDA-Public Use
  Company Number: US-BIOGENIDEC-2012BI041655

PATIENT
  Age: 31 Year
  Sex: Male

DRUGS (2)
  1. AVONEX [Suspect]
     Indication: MULTIPLE SCLEROSIS
     Route: 030
     Dates: start: 20120426, end: 20121213
  2. AVONEX [Suspect]
     Indication: MULTIPLE SCLEROSIS
     Route: 030
     Dates: start: 20121220

REACTIONS (2)
  - Influenza like illness [Not Recovered/Not Resolved]
  - Insomnia [Not Recovered/Not Resolved]
